FAERS Safety Report 7916356-9 (Version None)
Quarter: 2011Q4

REPORT INFORMATION
  Report Type: 
  Country: None (occurrence: None)
  Receive Date: 20111116
  Receipt Date: 20111109
  Transmission Date: 20120403
  Serious: No
  Sender: FDA-Public Use
  Company Number: US-BIOGENIDEC-2011BI043061

PATIENT
  Sex: Female

DRUGS (2)
  1. LYRICA [Concomitant]
     Indication: NEUROPATHY PERIPHERAL
     Dates: start: 20050101
  2. TYSABRI [Suspect]
     Indication: MULTIPLE SCLEROSIS
     Route: 042
     Dates: start: 20090701

REACTIONS (6)
  - CLOSTRIDIUM DIFFICILE COLITIS [None]
  - FUNGAL INFECTION [None]
  - URINARY TRACT INFECTION [None]
  - COLITIS [None]
  - FATIGUE [None]
  - VAGINAL INFECTION [None]
